FAERS Safety Report 12486941 (Version 1)
Quarter: 2016Q2

REPORT INFORMATION
  Report Type: Spontaneous
  Country: US (occurrence: None)
  Receive Date: 20160621
  Receipt Date: 20160621
  Transmission Date: 20160815
  Serious: No
  Sender: FDA-Public Use
  Company Number: None

PATIENT
  Age: 37 Year
  Sex: Female

DRUGS (6)
  1. NORETHINDRONE. [Concomitant]
     Active Substance: NORETHINDRONE
  2. BIOTIN [Concomitant]
     Active Substance: BIOTIN
  3. SOMAVERT [Suspect]
     Active Substance: PEGVISOMANT
     Indication: HYPOTHALAMO-PITUITARY DISORDER
     Route: 058
     Dates: start: 201605
  4. EPIPEN [Concomitant]
     Active Substance: EPINEPHRINE
  5. HYDROCHLOROT [Concomitant]
     Active Substance: HYDROCHLOROTHIAZIDE
  6. LIOTHYRONINE [Concomitant]
     Active Substance: LIOTHYRONINE

REACTIONS (2)
  - Menorrhagia [None]
  - Fatigue [None]

NARRATIVE: CASE EVENT DATE: 20160524
